FAERS Safety Report 17374947 (Version 1)
Quarter: 2020Q1

REPORT INFORMATION
  Report Type: Spontaneous
  Country: US (occurrence: US)
  Receive Date: 20200205
  Receipt Date: 20200205
  Transmission Date: 20200409
  Serious: Yes (Disabling, Other)
  Sender: FDA-Public Use
  Company Number: US-NOVOPROD-710973

PATIENT
  Age: 30 Year
  Sex: Male

DRUGS (1)
  1. NOVOLOG [Suspect]
     Active Substance: INSULIN ASPART
     Indication: TYPE 1 DIABETES MELLITUS
     Dosage: UNK
     Route: 058
     Dates: start: 2002

REACTIONS (16)
  - Joint injury [Unknown]
  - Diabetic retinopathy [Unknown]
  - Spondylolysis [Unknown]
  - Pelvic floor dyssynergia [Unknown]
  - Cognitive disorder [Unknown]
  - Learning disability [Unknown]
  - Intervertebral disc protrusion [Unknown]
  - Joint injury [Unknown]
  - Anxiety [Unknown]
  - Macular oedema [Unknown]
  - Vertebral foraminal stenosis [Unknown]
  - Arthralgia [Unknown]
  - Intervertebral disc protrusion [Unknown]
  - Contusion [Unknown]
  - Lumbar vertebral fracture [Unknown]
  - Constipation [Unknown]

NARRATIVE: CASE EVENT DATE: 201406
